FAERS Safety Report 7438936-X (Version None)
Quarter: 2011Q2

REPORT INFORMATION
  Report Type: 
  Country: None (occurrence: None)
  Receive Date: 20110426
  Receipt Date: 20110411
  Transmission Date: 20111010
  Serious: Yes (Other)
  Sender: FDA-Public Use
  Company Number: JP-BAYER-2011-031709

PATIENT
  Age: 72 Year
  Sex: Female

DRUGS (1)
  1. EOB PRIMOVIST [Suspect]
     Indication: PRODUCT USED FOR UNKNOWN INDICATION
     Dosage: UNK
     Route: 042
     Dates: start: 20100201, end: 20100201

REACTIONS (1)
  - ERYTHEMA MULTIFORME [None]
